FAERS Safety Report 6453193-9 (Version None)
Quarter: 2009Q4

REPORT INFORMATION
  Report Type: 
  Country: None (occurrence: None)
  Receive Date: 20091124
  Receipt Date: 20091119
  Transmission Date: 20100525
  Serious: Yes (Other)
  Sender: FDA-Public Use
  Company Number: FR-BRISTOL-MYERS SQUIBB COMPANY-14856389

PATIENT
  Age: 21 Year
  Sex: Female

DRUGS (1)
  1. BARACLUDE [Suspect]

REACTIONS (1)
  - PANCREATITIS ACUTE [None]
